FAERS Safety Report 8010285-0 (Version None)
Quarter: 2011Q4

REPORT INFORMATION
  Report Type: 
  Country: None (occurrence: None)
  Receive Date: 20111221
  Receipt Date: 20111218
  Transmission Date: 20120403
  Serious: Yes (Life-Threatening, Hospitalization)
  Sender: FDA-Public Use
  Company Number: 2011SP058682

PATIENT
  Age: 46 Year
  Sex: Female

DRUGS (3)
  1. AMLODIPINE [Concomitant]
  2. NUVARING [Suspect]
     Indication: CONTRACEPTION
     Dosage: VAG
     Route: 067
     Dates: start: 20100601, end: 20110801
  3. RAMIPRIL [Concomitant]

REACTIONS (3)
  - CEREBRAL INFARCTION [None]
  - HAEMORRHAGIC CEREBRAL INFARCTION [None]
  - HEMIANOPIA HOMONYMOUS [None]
